FAERS Safety Report 6110535-1 (Version None)
Quarter: 2009Q1

REPORT INFORMATION
  Report Type: 
  Country: None (occurrence: None)
  Receive Date: 20090310
  Receipt Date: 20090306
  Transmission Date: 20090719
  Serious: Yes (Other)
  Sender: FDA-Public Use
  Company Number: JP-B.I. PHARMACEUTICALS,INC./RIDGEFIELD-2009-BP-02744NB

PATIENT
  Age: 70 Year
  Sex: Male

DRUGS (3)
  1. MICARDIS [Suspect]
     Indication: HYPERTENSION
     Dosage: 40MG
     Route: 048
     Dates: start: 20050509, end: 20090107
  2. LIPITOR [Suspect]
     Indication: DYSLIPIDAEMIA
     Dosage: 5MG
     Route: 048
     Dates: start: 20070619, end: 20090107
  3. AMLODIPINE [Suspect]
     Indication: HYPERTENSION
     Dosage: 5MG
     Route: 048
     Dates: start: 20050524, end: 20090107

REACTIONS (3)
  - AMNESIA [None]
  - ASTHENIA [None]
  - DIZZINESS [None]
